FAERS Safety Report 7055319-5 (Version None)
Quarter: 2010Q4

REPORT INFORMATION
  Report Type: 
  Country: None (occurrence: None)
  Receive Date: 20101021
  Receipt Date: 20101012
  Transmission Date: 20110411
  Serious: Yes (Hospitalization, Other)
  Sender: FDA-Public Use
  Company Number: DE-ELI_LILLY_AND_COMPANY-DE201010002678

PATIENT
  Sex: Female
  Weight: 85.6 kg

DRUGS (2)
  1. BYETTA [Suspect]
     Indication: TYPE 2 DIABETES MELLITUS
     Dosage: 10 UG, 2/D
     Route: 058
     Dates: start: 20100401
  2. SIOFOR [Concomitant]
     Dosage: 1000 MG, 2/D
     Dates: start: 20100401

REACTIONS (4)
  - NAUSEA [None]
  - VARICOSE VEIN [None]
  - VON WILLEBRAND'S DISEASE [None]
  - WEIGHT DECREASED [None]
